FAERS Safety Report 19221088 (Version 1)
Quarter: 2021Q2

REPORT INFORMATION
  Report Type: Report from Study
  Country: ES (occurrence: GB)
  Receive Date: 20210506
  Receipt Date: 20210506
  Transmission Date: 20210717
  Serious: Yes (Other)
  Sender: FDA-Public Use
  Company Number: GB-TEVA-2021-GB-1909766

PATIENT
  Age: 12 Year
  Sex: Female

DRUGS (9)
  1. METHOTREXATE. [Suspect]
     Active Substance: METHOTREXATE
     Indication: STILL^S DISEASE
     Route: 065
  2. ISONIAZID. [Suspect]
     Active Substance: ISONIAZID
     Indication: PULMONARY TUBERCULOSIS
     Route: 065
  3. ETHAMBUTOL [Suspect]
     Active Substance: ETHAMBUTOL HYDROCHLORIDE
     Indication: PULMONARY TUBERCULOSIS
     Route: 065
  4. OFLOXACIN. [Suspect]
     Active Substance: OFLOXACIN
     Indication: PULMONARY TUBERCULOSIS
     Route: 065
  5. ETANERCEPT [Suspect]
     Active Substance: ETANERCEPT
     Indication: STILL^S DISEASE
     Route: 065
  6. AMIKACIN. [Suspect]
     Active Substance: AMIKACIN
     Indication: PULMONARY TUBERCULOSIS
     Route: 065
  7. RIFAMPICIN [Suspect]
     Active Substance: RIFAMPIN
     Indication: PULMONARY TUBERCULOSIS
     Route: 065
  8. PYRAZINAMIDE. [Suspect]
     Active Substance: PYRAZINAMIDE
     Indication: PULMONARY TUBERCULOSIS
     Route: 065
  9. MELOXICAM. [Concomitant]
     Active Substance: MELOXICAM
     Indication: STILL^S DISEASE
     Route: 065

REACTIONS (5)
  - Pulmonary tuberculosis [Recovered/Resolved with Sequelae]
  - Pleurisy [Recovered/Resolved]
  - Pulmonary mass [Recovered/Resolved]
  - Pericarditis [Recovered/Resolved]
  - Immune reconstitution inflammatory syndrome [Recovered/Resolved]
